APPROVED DRUG PRODUCT: RAUWILOID
Active Ingredient: ALSEROXYLON
Strength: 2MG
Dosage Form/Route: TABLET;ORAL
Application: N008867 | Product #001
Applicant: 3M PHARMACEUTICALS INC
Approved: Approved Prior to Jan 1, 1982 | RLD: No | RS: No | Type: DISCN